FAERS Safety Report 5074725-1 (Version None)
Quarter: 2006Q3

REPORT INFORMATION
  Report Type: 
  Country: None (occurrence: None)
  Receive Date: 20060807
  Receipt Date: 20060725
  Transmission Date: 20061208
  Serious: Yes (Hospitalization)
  Sender: FDA-Public Use
  Company Number: 2006092723

PATIENT
  Sex: Male

DRUGS (5)
  1. LIPITOR [Suspect]
     Indication: BLOOD CHOLESTEROL INCREASED
     Dosage: 20 MG (20 MG, 1 IN 1 D), ORAL
     Route: 048
     Dates: start: 20060701
  2. METFORMIN [Concomitant]
  3. GLUCOBAY [Concomitant]
  4. ACETYLSALICYLIC ACID SRT [Concomitant]
  5. ENALAPRIL MALEATE [Concomitant]

REACTIONS (2)
  - ANGIOPLASTY [None]
  - STENT PLACEMENT [None]
